FAERS Safety Report 7896475-6 (Version None)
Quarter: 2011Q4

REPORT INFORMATION
  Report Type: 
  Country: None (occurrence: None)
  Receive Date: 20111106
  Receipt Date: 20110909
  Transmission Date: 20120403
  Serious: No
  Sender: FDA-Public Use
  Company Number: US-AMGEN-USASP2011046382

PATIENT
  Age: 59 Year
  Sex: Male

DRUGS (3)
  1. PLAQUENIL [Concomitant]
     Dates: start: 20100101
  2. METHOTREXATE [Concomitant]
     Dates: start: 20100101
  3. ENBREL [Suspect]
     Indication: PSORIASIS
     Dosage: 50 MG, 2 TIMES/WK
     Dates: start: 20100101, end: 20110301

REACTIONS (1)
  - PNEUMONIA [None]
